FAERS Safety Report 9084675 (Version 1)
Quarter: 2013Q1

REPORT INFORMATION
  Report Type: Report from Study
  Country: US (occurrence: US)
  Receive Date: 20130131
  Receipt Date: 20130131
  Transmission Date: 20140127
  Serious: No
  Sender: FDA-Public Use
  Company Number: US-ABBOTT-12P-163-1001793-00

PATIENT
  Sex: Male

DRUGS (4)
  1. HUMIRA [Suspect]
     Indication: PRODUCT USED FOR UNKNOWN INDICATION
     Dates: start: 2011, end: 201209
  2. HUMIRA [Suspect]
     Dates: start: 201209
  3. ALBUTEROL [Concomitant]
     Indication: INTERSTITIAL LUNG DISEASE
  4. PROVANA [Concomitant]
     Indication: INTERSTITIAL LUNG DISEASE

REACTIONS (1)
  - Drug ineffective [Not Recovered/Not Resolved]
